FAERS Safety Report 18381464 (Version 1)
Quarter: 2020Q4

REPORT INFORMATION
  Report Type: Spontaneous
  Country: US (occurrence: US)
  Receive Date: 20201013
  Receipt Date: 20201013
  Transmission Date: 20210114
  Serious: Yes (Death)
  Sender: FDA-Public Use
  Company Number: None

PATIENT
  Age: 41 Year
  Sex: Female
  Weight: 68.1 kg

DRUGS (16)
  1. D+C+E+T ALAFENAMIDE [Concomitant]
  2. SYMTUZA [Concomitant]
     Active Substance: COBICISTAT\DARUNAVIR\EMTRICITABINE\TENOFOVIR ALAFENAMIDE
  3. AMLODIPINE BESYLATE. [Concomitant]
     Active Substance: AMLODIPINE BESYLATE
  4. ONDANSETRON [Concomitant]
     Active Substance: ONDANSETRON
  5. FAMOTIDINE. [Suspect]
     Active Substance: FAMOTIDINE
     Indication: GASTROOESOPHAGEAL REFLUX DISEASE
     Dosage: ?          OTHER FREQUENCY:ONCE EVERY 21 DAYS;?
     Route: 042
     Dates: start: 20200826, end: 20201011
  6. MEROPENEM. [Concomitant]
     Active Substance: MEROPENEM
  7. METOCLOPRAMIDE. [Concomitant]
     Active Substance: METOCLOPRAMIDE
  8. ZOSYN [Concomitant]
     Active Substance: PIPERACILLIN SODIUM\TAZOBACTAM SODIUM
  9. DOLUTEGRAVIR [Concomitant]
     Active Substance: DOLUTEGRAVIR
  10. DEXAMETHASONE. [Suspect]
     Active Substance: DEXAMETHASONE
     Indication: INFLAMMATION
     Dosage: ?          OTHER FREQUENCY:ONCE EVERY 21 DAYS;?
     Route: 042
     Dates: start: 20200813, end: 20201011
  11. ENOXAPRIN [Concomitant]
     Active Substance: ENOXAPARIN
  12. OXYCODONE AND ACETAMINOPHEN [Concomitant]
     Active Substance: ACETAMINOPHEN\OXYCODONE HYDROCHLORIDE
  13. PACLITAXEL. [Concomitant]
     Active Substance: PACLITAXEL
  14. AVASTIN [Concomitant]
     Active Substance: BEVACIZUMAB
  15. CISPLATIN. [Concomitant]
     Active Substance: CISPLATIN
  16. FOSAPREPITANT [Concomitant]
     Active Substance: FOSAPREPITANT

REACTIONS (1)
  - Death [None]

NARRATIVE: CASE EVENT DATE: 20201011
